FAERS Safety Report 9627217 (Version 1)
Quarter: 2013Q4

REPORT INFORMATION
  Report Type: Not Available
  Country: US (occurrence: US)
  Receive Date: 20131016
  Receipt Date: 20131016
  Transmission Date: 20140711
  Serious: Yes (Other)
  Sender: FDA-Public Use
  Company Number: US-LUNDBECK-DKLU1084226

PATIENT
  Sex: Female

DRUGS (4)
  1. SABRIL (FOR ORAL SOLUTION) [Suspect]
     Indication: INFANTILE SPASMS
     Dates: start: 201202
  2. SABRIL (FOR ORAL SOLUTION) [Suspect]
     Dates: start: 201202
  3. SABRIL (FOR ORAL SOLUTION) [Suspect]
     Dates: start: 201202
  4. SABRIL (FOR ORAL SOLUTION) [Suspect]
     Dates: start: 20120829

REACTIONS (1)
  - Convulsion [Unknown]
